FAERS Safety Report 7830960-8 (Version None)
Quarter: 2011Q4

REPORT INFORMATION
  Report Type: 
  Country: None (occurrence: None)
  Receive Date: 20111021
  Receipt Date: 20111018
  Transmission Date: 20120403
  Serious: Yes (Other)
  Sender: FDA-Public Use
  Company Number: US-PFIZER INC-2011251137

PATIENT
  Sex: Female
  Weight: 74.8 kg

DRUGS (4)
  1. LYRICA [Suspect]
     Indication: SURGERY
  2. LISDEXAMFETAMINE [Concomitant]
     Indication: ATTENTION DEFICIT/HYPERACTIVITY DISORDER
     Dosage: UNK
  3. METFORMIN [Concomitant]
     Indication: DIABETES MELLITUS
     Dosage: UNK
  4. LYRICA [Suspect]
     Indication: NERVE INJURY
     Dosage: 50 MG, 3X/DAY
     Route: 048
     Dates: start: 20111014

REACTIONS (3)
  - PAIN [None]
  - FEELING OF RELAXATION [None]
  - BALANCE DISORDER [None]
